FAERS Safety Report 24079864 (Version 1)
Quarter: 2024Q3

REPORT INFORMATION
  Report Type: Spontaneous
  Country: US (occurrence: None)
  Receive Date: 20240711
  Receipt Date: 20240711
  Transmission Date: 20241017
  Serious: Yes (Hospitalization)
  Sender: Public
  Company Number: None

PATIENT
  Sex: Male
  Weight: 100.5 kg

DRUGS (7)
  1. CYCLOPHOSPHAMIDE [Suspect]
     Active Substance: CYCLOPHOSPHAMIDE
  2. CYTARABINE [Concomitant]
  3. METHOTREXATE [Concomitant]
  4. ONCASPAR [Concomitant]
     Active Substance: PEGASPARGASE
  5. ST1571 (IMATINIB,GLEEVEC) [Concomitant]
  6. THIOGUANINE ANHYDROUS [Concomitant]
     Active Substance: THIOGUANINE ANHYDROUS
  7. VINCRISTINE SULFATE [Concomitant]

REACTIONS (10)
  - Febrile neutropenia [None]
  - Coronavirus test positive [None]
  - Pulmonary mass [None]
  - Candida test positive [None]
  - Staphylococcus test positive [None]
  - Enterococcus test positive [None]
  - Hypotension [None]
  - Thrombocytopenia [None]
  - Acute kidney injury [None]
  - Dyspnoea [None]

NARRATIVE: CASE EVENT DATE: 20240630
